FAERS Safety Report 8214761-7 (Version None)
Quarter: 2012Q1

REPORT INFORMATION
  Report Type: 
  Country: None (occurrence: None)
  Receive Date: 20120316
  Receipt Date: 20120302
  Transmission Date: 20120608
  Serious: Yes (Other)
  Sender: FDA-Public Use
  Company Number: US-ELI_LILLY_AND_COMPANY-US201203001299

PATIENT
  Age: 82 Year
  Sex: Female
  Weight: 44.898 kg

DRUGS (4)
  1. OTHER ANALGESICS AND ANTIPYRETICS [Concomitant]
  2. NAMENDA [Concomitant]
  3. CYMBALTA [Suspect]
     Dosage: 60 MG, QD
     Dates: start: 20111201
  4. OTHER ANTIHYPERTENSIVES [Concomitant]

REACTIONS (4)
  - LOSS OF CONSCIOUSNESS [None]
  - DIZZINESS [None]
  - HYPERSOMNIA [None]
  - FALL [None]
